FAERS Safety Report 14356035 (Version 3)
Quarter: 2018Q2

REPORT INFORMATION
  Report Type: Spontaneous
  Country: US (occurrence: US)
  Receive Date: 20180105
  Receipt Date: 20180423
  Transmission Date: 20180711
  Serious: Yes (Hospitalization, Other)
  Sender: FDA-Public Use
  Company Number: US-BRISTOL-MYERS SQUIBB COMPANY-BMS-2017-118872

PATIENT
  Sex: Male
  Weight: 103.4 kg

DRUGS (1)
  1. YERVOY [Suspect]
     Active Substance: IPILIMUMAB
     Indication: MALIGNANT MELANOMA
     Dosage: 10 UNK, Q3WK
     Route: 042
     Dates: start: 20161007, end: 20171008

REACTIONS (3)
  - Hospitalisation [Unknown]
  - Malignant neoplasm progression [Unknown]
  - Prescribed overdose [Unknown]
